FAERS Safety Report 8896923 (Version 3)
Quarter: 2013Q1

REPORT INFORMATION
  Report Type: Spontaneous
  Country: US (occurrence: None)
  Receive Date: 20121105
  Receipt Date: 20130227
  Transmission Date: 20140127
  Serious: Yes (Death, Congenital Anomaly)
  Sender: FDA-Public Use
  Company Number: 2012US0359

PATIENT
  Sex: Male

DRUGS (1)
  1. KINERET [Suspect]
     Route: 064

REACTIONS (4)
  - Oligohydramnios [None]
  - Renal aplasia [None]
  - Foetal exposure during pregnancy [None]
  - Foetal death [None]
